FAERS Safety Report 9102428 (Version 3)
Quarter: 2014Q1

REPORT INFORMATION
  Report Type: Spontaneous
  Country: US (occurrence: US)
  Receive Date: 20130218
  Receipt Date: 20140326
  Transmission Date: 20141002
  Serious: No
  Sender: FDA-Public Use
  Company Number: US-B.I. PHARMACEUTICALS,INC./RIDGEFIELD-2013-BI-04190BP

PATIENT
  Age: 83 Year
  Sex: Male
  Weight: 84 kg

DRUGS (17)
  1. COMBIVENT [Suspect]
     Indication: EMPHYSEMA
     Dosage: FORMULATION: INHALATION AEROSOL; STREGTH: 20MCG/100MCG; DAILY DOSE: 240 MCG/200 MCG
     Route: 055
     Dates: start: 2003, end: 20130212
  2. COMBIVENT [Suspect]
     Dosage: FORMULATION: INHALATION AEROSOL; STREGTH: 18 MCG/103MCG
     Route: 055
     Dates: start: 1999, end: 20130211
  3. COMBIVENT [Suspect]
     Indication: EMPHYSEMA
     Dosage: STRENGTH: 20 MCG / 100 MCG; DAILY DOSE: 120 MCG / 600 MCG
     Route: 055
     Dates: start: 20130213
  4. COMBIVENT [Suspect]
     Indication: CHRONIC OBSTRUCTIVE PULMONARY DISEASE
     Dosage: STRENGTH: 20 MCG/ 100 MCG, DAILY DOSE: 100 MCG / 500 MCG
     Route: 055
     Dates: start: 20130211, end: 20130211
  5. COMBIVENT [Suspect]
     Dosage: STRENGTH: 20 MCG/ 100 MCG, DAILY DOSE: 80 MCG / 400 MCG
     Route: 055
     Dates: start: 20130212
  6. COMBIVENT [Suspect]
     Dosage: STRENGTH: 20 MCG/ 100 MCG, DAILY DOSE: 120 MCG / 600 MCG
     Route: 055
     Dates: start: 20130213
  7. COMBIVENT [Suspect]
     Dosage: STRENGTH: 20 MCG / 100 MCG; DAILY DOSE: 80 MCG / 400 MCG
     Route: 055
     Dates: start: 201311
  8. MULTIVITAMIN [Concomitant]
     Route: 048
  9. LIPITOR [Concomitant]
     Indication: BLOOD CHOLESTEROL INCREASED
     Dosage: 20 MG
     Route: 048
  10. ASPIRIN [Concomitant]
     Indication: CARDIAC DISORDER
     Dosage: 81 MG
     Route: 048
  11. VITAMIN D3 [Concomitant]
     Dosage: 3000 U
     Route: 048
  12. VASOTEC [Concomitant]
     Route: 048
  13. CARDURA [Concomitant]
     Route: 048
  14. DOXAZOSIN [Concomitant]
     Indication: DYSURIA
     Dosage: 4 MG
     Route: 048
  15. ENALAPRIL [Concomitant]
     Dosage: 5 MG
     Route: 048
  16. PREDNISONE [Concomitant]
     Indication: EMPHYSEMA
     Dosage: 10 MG
     Route: 048
  17. IPRATOPIUM BROMIDE [Concomitant]
     Indication: EMPHYSEMA
     Dosage: FORMULATION: NASAL SPRAY, STRENGTH: 2 SPRAYS EACH NOSTRIL DAILY DOSE: 8 SPRAYS
     Route: 045

REACTIONS (14)
  - Nasopharyngitis [Not Recovered/Not Resolved]
  - Oropharyngeal pain [Recovered/Resolved]
  - Rhinorrhoea [Not Recovered/Not Resolved]
  - Extra dose administered [Recovered/Resolved]
  - Rhinorrhoea [Unknown]
  - Pulmonary congestion [Unknown]
  - Upper respiratory tract infection [Not Recovered/Not Resolved]
  - Dyspnoea [Unknown]
  - Dyspnoea [Unknown]
  - Dyspnoea [Unknown]
  - Cough [Recovered/Resolved]
  - Cough [Recovered/Resolved]
  - Overdose [Unknown]
  - Drug ineffective [Not Recovered/Not Resolved]
